FAERS Safety Report 7010959-4 (Version None)
Quarter: 2010Q3

REPORT INFORMATION
  Report Type: 
  Country: None (occurrence: None)
  Receive Date: 20100922
  Receipt Date: 20100922
  Transmission Date: 20110219
  Serious: Yes (Other)
  Sender: FDA-Public Use
  Company Number: None

PATIENT
  Age: 45 Year
  Sex: Male
  Weight: 87.0906 kg

DRUGS (1)
  1. ISONIAZID [Suspect]
     Indication: TUBERCULOSIS
     Dosage: 300MG/DAY 1X/DAY PO
     Route: 048
     Dates: start: 20100702, end: 20100914

REACTIONS (6)
  - ALANINE AMINOTRANSFERASE INCREASED [None]
  - ASPARTATE AMINOTRANSFERASE INCREASED [None]
  - FATIGUE [None]
  - HEADACHE [None]
  - INFLUENZA [None]
  - PYREXIA [None]
